FAERS Safety Report 7905116-0 (Version None)
Quarter: 2011Q4

REPORT INFORMATION
  Report Type: 
  Country: None (occurrence: None)
  Receive Date: 20111109
  Receipt Date: 20111031
  Transmission Date: 20120403
  Serious: Yes (Other)
  Sender: FDA-Public Use
  Company Number: JP-PFIZER INC-2011237091

PATIENT
  Age: 73 Year
  Sex: Male

DRUGS (1)
  1. ZYVOX [Suspect]
     Dosage: UNK

REACTIONS (2)
  - OPTIC NERVE DISORDER [None]
  - SENSORY DISTURBANCE [None]
